FAERS Safety Report 6532374-X (Version None)
Quarter: 2010Q1

REPORT INFORMATION
  Report Type: 
  Country: None (occurrence: None)
  Receive Date: 20100108
  Receipt Date: 20100106
  Transmission Date: 20100710
  Serious: Yes (Death)
  Sender: FDA-Public Use
  Company Number: US-GILEAD-2009-0026257

PATIENT
  Sex: Female

DRUGS (14)
  1. LETAIRIS [Suspect]
     Indication: PULMONARY ARTERIAL HYPERTENSION
     Route: 048
     Dates: start: 20080210, end: 20091219
  2. CALCIUM [Concomitant]
  3. BONIVA [Concomitant]
  4. NORVASC [Concomitant]
  5. COZAAR [Concomitant]
  6. PREMARIN [Concomitant]
  7. FUROSEMIDE [Concomitant]
  8. ASPIRIN [Concomitant]
  9. ICAPS [Concomitant]
  10. HUMALOG [Concomitant]
  11. ZETIA [Concomitant]
  12. CARDURA [Concomitant]
  13. FLONASE [Concomitant]
  14. MIRAPEX [Concomitant]

REACTIONS (1)
  - DEATH [None]
